FAERS Safety Report 4759118-6 (Version None)
Quarter: 2005Q3

REPORT INFORMATION
  Report Type: 
  Country: None (occurrence: None)
  Receive Date: 20050831
  Receipt Date: 20050817
  Transmission Date: 20060218
  Serious: No
  Sender: FDA-Public Use
  Company Number: 02100-JPN-05-0387

PATIENT
  Age: 70 Year
  Sex: Male

DRUGS (4)
  1. CILOSTAZOL [Suspect]
     Indication: ARTERIOSCLEROSIS
     Dosage: ORAL
     Route: 048
     Dates: start: 20050701, end: 20050101
  2. CILOSTAZOL [Suspect]
     Indication: CEREBRAL INFARCTION
     Dosage: ORAL
     Route: 048
     Dates: start: 20050701, end: 20050101
  3. BERAPROST SODIUM [Suspect]
     Indication: ARTERIOSCLEROSIS
     Dosage: ORAL
     Route: 048
     Dates: start: 20050701, end: 20050101
  4. BERAPROST SODIUM [Suspect]
     Indication: CEREBRAL INFARCTION
     Dosage: ORAL
     Route: 048
     Dates: start: 20050701, end: 20050101

REACTIONS (6)
  - ARTERIOSCLEROSIS [None]
  - BLOOD CREATININE DECREASED [None]
  - PERIPHERAL VASCULAR DISORDER [None]
  - RENAL IMPAIRMENT [None]
  - RENAL VESSEL DISORDER [None]
  - URINE OUTPUT DECREASED [None]
